FAERS Safety Report 5224048-2 (Version None)
Quarter: 2007Q1

REPORT INFORMATION
  Report Type: 
  Country: None (occurrence: None)
  Receive Date: 20070130
  Receipt Date: 20070119
  Transmission Date: 20070707
  Serious: Yes (Hospitalization)
  Sender: FDA-Public Use
  Company Number: ESWYE008103JAN07

PATIENT
  Sex: Female
  Weight: 42.9 kg

DRUGS (3)
  1. VENLAFAXINE HCL [Suspect]
     Indication: DEPRESSION
     Route: 048
     Dates: start: 20061104
  2. NOCTAMID [Concomitant]
     Indication: INSOMNIA
     Route: 048
     Dates: start: 20060904
  3. SEROQUEL [Concomitant]
     Indication: ABNORMAL BEHAVIOUR
     Route: 048
     Dates: start: 20061214

REACTIONS (1)
  - DRUG SCREEN FALSE POSITIVE [None]
